FAERS Safety Report 6391786-8 (Version None)
Quarter: 2009Q4

REPORT INFORMATION
  Report Type: 
  Country: None (occurrence: None)
  Receive Date: 20091007
  Receipt Date: 20090925
  Transmission Date: 20100525
  Serious: Yes (Hospitalization)
  Sender: FDA-Public Use
  Company Number: FR-WYE-H11351309

PATIENT
  Sex: Male

DRUGS (11)
  1. CORDARONE [Suspect]
     Indication: ARRHYTHMIA
     Route: 048
     Dates: start: 20090724
  2. HEPARIN SODIUM [Suspect]
     Indication: MYOCARDIAL INFARCTION
     Route: 042
     Dates: start: 20090707, end: 20090908
  3. TAHOR [Suspect]
     Indication: HYPERCHOLESTEROLAEMIA
     Route: 048
     Dates: start: 20090721
  4. NEXIUM [Suspect]
     Indication: PROPHYLAXIS AGAINST GASTROINTESTINAL ULCER
     Route: 048
     Dates: start: 20090708
  5. VANCOMYCIN [Concomitant]
     Indication: DRUG USE FOR UNKNOWN INDICATION
     Dosage: 2.5 MG; FREQUENCY NOT PROVIDED
     Route: 042
     Dates: start: 20090725, end: 20090803
  6. HYPNOVEL [Concomitant]
     Indication: SEDATION
     Dosage: UNKNOWN
     Route: 065
     Dates: start: 20090724
  7. SUFENTANIL CITRATE [Concomitant]
     Indication: SEDATION
     Dosage: UNKNOWN
     Route: 065
     Dates: start: 20090724
  8. DOBUTAMINE HCL [Concomitant]
     Indication: DRUG USE FOR UNKNOWN INDICATION
     Dosage: UNKNOWN
     Route: 065
     Dates: start: 20090724, end: 20090805
  9. ROCEPHIN [Concomitant]
     Indication: DRUG USE FOR UNKNOWN INDICATION
     Dosage: 2 G; FREQUENCY NOT PROVIDED
     Route: 042
     Dates: start: 20090724, end: 20090731
  10. KARDEGIC [Suspect]
     Indication: ISCHAEMIC HEART DISEASE PROPHYLAXIS
     Route: 048
     Dates: start: 20090707
  11. ORACILLINE [Concomitant]
     Indication: PROPHYLAXIS
     Dosage: UNKNOWN
     Route: 048

REACTIONS (1)
  - EOSINOPHILIA [None]
